FAERS Safety Report 11773787 (Version 2)
Quarter: 2016Q2

REPORT INFORMATION
  Report Type: Report from Study
  Country: JP (occurrence: JP)
  Receive Date: 20151124
  Receipt Date: 20160616
  Transmission Date: 20160815
  Serious: Yes (Hospitalization)
  Sender: FDA-Public Use
  Company Number: JP-EISAI MEDICAL RESEARCH-EC-2015-012241

PATIENT
  Age: 69 Year
  Sex: Female
  Weight: 46 kg

DRUGS (14)
  1. LENVIMA [Suspect]
     Active Substance: LENVATINIB
     Route: 048
     Dates: start: 20151119, end: 20151210
  2. LENVIMA [Suspect]
     Active Substance: LENVATINIB
     Route: 048
     Dates: start: 20151217
  3. SELARA [Concomitant]
     Active Substance: EPLERENONE
  4. CALCIUM LACTATE HYDRATE [Concomitant]
     Active Substance: CALCIUM LACTATE
  5. KERATINAMIN [Concomitant]
     Active Substance: UREA
  6. DIART [Concomitant]
     Active Substance: AZOSEMIDE
  7. LENVIMA [Suspect]
     Active Substance: LENVATINIB
     Route: 048
     Dates: start: 20151022, end: 20151112
  8. CALFINA [Concomitant]
     Active Substance: ALFACALCIDOL
  9. OLMETEC [Concomitant]
     Active Substance: OLMESARTAN MEDOXOMIL
  10. LENVIMA [Suspect]
     Active Substance: LENVATINIB
     Indication: POORLY DIFFERENTIATED THYROID CARCINOMA
     Route: 048
     Dates: start: 20150916, end: 20151015
  11. LEVOTHYROXINE SODIUM HYDRATE [Concomitant]
  12. TAKEPRON [Concomitant]
     Active Substance: LANSOPRAZOLE
  13. ELIQUIS [Concomitant]
     Active Substance: APIXABAN
  14. XARELTO [Concomitant]
     Active Substance: RIVAROXABAN

REACTIONS (1)
  - Fatigue [Recovering/Resolving]

NARRATIVE: CASE EVENT DATE: 20151105
